FAERS Safety Report 8871580 (Version 2)
Quarter: 2013Q2

REPORT INFORMATION
  Report Type: Spontaneous
  Country: US (occurrence: US)
  Receive Date: 20121023
  Receipt Date: 20130412
  Transmission Date: 20140414
  Serious: Yes (Hospitalization)
  Sender: FDA-Public Use
  Company Number: US-ASTELLAS-2012US007727

PATIENT
  Sex: Female
  Weight: 98 kg

DRUGS (12)
  1. PROGRAF [Suspect]
     Indication: RENAL TRANSPLANT
     Dosage: 7 MG, BID
     Route: 048
     Dates: start: 20090423
  2. TACROLIMUS [Suspect]
     Indication: PRODUCT USED FOR UNKNOWN INDICATION
     Dosage: UNK
     Route: 065
  3. PREDNISONE [Concomitant]
     Indication: RENAL TRANSPLANT
     Dosage: 2.5 MG, UID/QD
     Route: 048
     Dates: start: 20090423
  4. METOPROLOL [Concomitant]
     Indication: BLOOD PRESSURE
     Dosage: 100 MG, BID
     Route: 048
     Dates: start: 2002
  5. LANTUS [Concomitant]
     Indication: DIABETES MELLITUS
     Dosage: 30 U, UID/QD
     Route: 058
     Dates: start: 20090423
  6. LANSOPRAZOLE [Concomitant]
     Indication: GASTRIC DISORDER
     Dosage: 30 MG, BID
     Route: 048
     Dates: start: 20090423
  7. MYFORTIC [Concomitant]
     Indication: RENAL TRANSPLANT
     Dosage: 360 MG IN THE MORNING, 360 MG IN THE EVENING AND 720 MG AT BEDTIME
     Route: 048
     Dates: start: 20090423
  8. ALBUTEROL SULFATE [Concomitant]
     Indication: ASTHMA
     Dosage: 2.5 MG, Q 4 HOURS
     Route: 065
     Dates: start: 1974
  9. NOVOLOG [Concomitant]
     Indication: DIABETES MELLITUS
     Dosage: 5 U, TID
     Route: 058
     Dates: start: 20090423
  10. TRAMADOL [Concomitant]
     Indication: ARTHRITIS
     Dosage: 50 MG, PRN Q 6 HOURS
     Route: 048
     Dates: start: 2002
  11. MAGNESIUM OXIDE [Concomitant]
     Indication: PRODUCT USED FOR UNKNOWN INDICATION
     Dosage: 500 MG, UID/QD
     Route: 048
     Dates: start: 20090423
  12. ADVAIR [Concomitant]
     Indication: ASTHMA
     Dosage: 550 UG, BID
     Route: 065
     Dates: start: 1974

REACTIONS (3)
  - Blood glucose abnormal [Unknown]
  - Pruritus [Unknown]
  - Feeling abnormal [Unknown]
